FAERS Safety Report 20945501 (Version 2)
Quarter: 2022Q2

REPORT INFORMATION
  Report Type: Spontaneous
  Country: CA (occurrence: CA)
  Receive Date: 20220610
  Receipt Date: 20220621
  Transmission Date: 20220721
  Serious: Yes (Other)
  Sender: FDA-Public Use
  Company Number: CA-PFIZER INC-202200725410

PATIENT
  Age: 54 Year
  Sex: Female

DRUGS (3)
  1. LORBRENA [Suspect]
     Active Substance: LORLATINIB
     Dosage: 100 MG, DAILY
     Route: 048
     Dates: start: 20220420, end: 2022
  2. LORBRENA [Suspect]
     Active Substance: LORLATINIB
     Dosage: 75 MG, 1X/DAY
     Dates: end: 20220606
  3. LORBRENA [Suspect]
     Active Substance: LORLATINIB
     Dosage: 25 MG, DAILY (DAILY WITH 3 REPEATS)
     Route: 048

REACTIONS (4)
  - Hallucination, visual [Unknown]
  - Hallucination, auditory [Unknown]
  - Malaise [Unknown]
  - Off label use [Unknown]

NARRATIVE: CASE EVENT DATE: 20220101
